FAERS Safety Report 6962232 (Version 3)
Quarter: 2020Q3

REPORT INFORMATION
  Report Type: Report from Study
  Country: US (occurrence: US)
  Receive Date: 20090407
  Receipt Date: 20090515
  Transmission Date: 20201104
  Serious: Yes (Hospitalization)
  Sender: FDA-Public Use
  Company Number: US-ROCHE-624182

PATIENT
  Age: 82 Year
  Sex: Female
  Weight: 82.1 kg

DRUGS (12)
  1. VITAMINE D [Concomitant]
  2. MULTI?VITAMIN [Concomitant]
     Active Substance: .ALPHA.-TOCOPHEROL ACETATE, DL-\ASCORBIC ACID\CYANOCOBALAMIN\FLUORIDE ION\FOLIC ACID\NIACIN\PYRIDOXINE\RIBOFLAVIN\THIAMINE\VITAMIN A\VITAMIN D
  3. IBANDRONIC ACID. [Suspect]
     Active Substance: IBANDRONIC ACID
     Indication: BACK PAIN
     Dosage: OTHER INDICATION: OSTEOPOROSIS
     Route: 048
     Dates: start: 20070108, end: 20081028
  4. CALCIUM [Concomitant]
     Active Substance: CALCIUM
  5. COLACE [Concomitant]
     Active Substance: DOCUSATE SODIUM
  6. ASPIRIN. [Concomitant]
     Active Substance: ASPIRIN
     Dosage: DRUG: BABY ASPIRIN
  7. VYTORIN [Concomitant]
     Active Substance: EZETIMIBE\SIMVASTATIN
  8. LOZOL [Concomitant]
     Active Substance: INDAPAMIDE
  9. PRINIVIL [Concomitant]
     Active Substance: LISINOPRIL
  10. CENTRUM SILVER [Concomitant]
     Active Substance: MINERALS\VITAMINS
  11. TYLENOL [Concomitant]
     Active Substance: ACETAMINOPHEN
  12. K?DUR [Concomitant]
     Active Substance: POTASSIUM CHLORIDE

REACTIONS (2)
  - Spinal stenosis [Unknown]
  - Scoliosis [Unknown]

NARRATIVE: CASE EVENT DATE: 20080201
